FAERS Safety Report 19216557 (Version 1)
Quarter: 2021Q2

REPORT INFORMATION
  Report Type: Spontaneous
  Country: US (occurrence: US)
  Receive Date: 20210505
  Receipt Date: 20210505
  Transmission Date: 20210717
  Serious: No
  Sender: FDA-Public Use
  Company Number: None

PATIENT
  Age: 79 Year
  Sex: Female
  Weight: 87 kg

DRUGS (1)
  1. RANITIDINE (RANITIDINE HCL 150MG TAB) [Suspect]
     Active Substance: RANITIDINE HYDROCHLORIDE
     Indication: GASTROOESOPHAGEAL REFLUX DISEASE
     Route: 048
     Dates: start: 20161102, end: 20180531

REACTIONS (7)
  - Delirium [None]
  - Angina pectoris [None]
  - Vomiting [None]
  - Dyspepsia [None]
  - Nausea [None]
  - Confusional state [None]
  - Depression [None]

NARRATIVE: CASE EVENT DATE: 20180531
